FAERS Safety Report 6064371-5 (Version None)
Quarter: 2009Q1

REPORT INFORMATION
  Report Type: 
  Country: None (occurrence: None)
  Receive Date: 20090203
  Receipt Date: 20090203
  Transmission Date: 20090719
  Serious: Yes (Other)
  Sender: FDA-Public Use
  Company Number: None

PATIENT
  Age: 38 Year
  Sex: Female
  Weight: 70.7611 kg

DRUGS (2)
  1. ACNEFREE 2.5% UNIVERSITY MEDICAL [Suspect]
     Indication: ACNE
     Dosage: APPLY TO FACE WITH COTTON PAD DAILY A.M. + P.M. EPIDURAL
     Route: 008
     Dates: start: 20090126, end: 20090126
  2. ACNEFREE 3.7% UNIVERSITY MEDICAL [Suspect]
     Indication: ACNE
     Dosage: APPLY TO FACE WITH COTTON PAD DAILY A.M. + P.M. EPIDURAL
     Route: 008
     Dates: start: 20090126, end: 20090126

REACTIONS (6)
  - BURNING SENSATION [None]
  - DRY SKIN [None]
  - EMOTIONAL DISORDER [None]
  - ERYTHEMA [None]
  - SKIN EXFOLIATION [None]
  - SWELLING FACE [None]
